FAERS Safety Report 19767184 (Version 1)
Quarter: 2021Q3

REPORT INFORMATION
  Report Type: Spontaneous
  Country: DE (occurrence: DE)
  Receive Date: 20210830
  Receipt Date: 20210830
  Transmission Date: 20211014
  Serious: Yes (Other)
  Sender: FDA-Public Use
  Company Number: DE-ASCEND THERAPEUTICS US, LLC-2117818

PATIENT
  Age: 51 Year
  Sex: Female

DRUGS (6)
  1. ESTROGEL [Suspect]
     Active Substance: ESTRADIOL
     Indication: MENOPAUSAL SYMPTOMS
     Route: 065
     Dates: start: 202101, end: 2021
  2. GYNOKADIN(ESTRADIOL HEMIHYDRATE)(GEL) [Suspect]
     Active Substance: ESTRADIOL HEMIHYDRATE
     Route: 065
     Dates: start: 2021
  3. UTROGEST(PROGESTERONE) [Suspect]
     Active Substance: PROGESTERONE
     Route: 065
     Dates: start: 202101
  4. ESTROGEL [Suspect]
     Active Substance: ESTRADIOL
  5. GYNOKADIN(ESTRADIOL HEMIHYDRATE)(GEL) [Suspect]
     Active Substance: ESTRADIOL HEMIHYDRATE
     Route: 065
     Dates: start: 202107, end: 2021
  6. GYNOKADIN(ESTRADIOL HEMIHYDRATE)(GEL) [Suspect]
     Active Substance: ESTRADIOL HEMIHYDRATE
     Route: 065
     Dates: start: 202101, end: 2021

REACTIONS (4)
  - Breast tenderness [Unknown]
  - Back pain [Unknown]
  - Intentional product use issue [None]
  - Postmenopausal haemorrhage [Unknown]

NARRATIVE: CASE EVENT DATE: 2021
